FAERS Safety Report 20998681 (Version 1)
Quarter: 2022Q2

REPORT INFORMATION
  Report Type: Spontaneous
  Country: US (occurrence: US)
  Receive Date: 20220623
  Receipt Date: 20220623
  Transmission Date: 20220721
  Serious: Yes (Hospitalization)
  Sender: FDA-Public Use
  Company Number: US-GILEAD-2022-0586358

PATIENT
  Age: 74 Year
  Sex: Female

DRUGS (1)
  1. HARVONI [Suspect]
     Active Substance: LEDIPASVIR\SOFOSBUVIR
     Indication: Hepatitis C
     Dosage: 1 DOSAGE FORM, QD
     Route: 065
     Dates: start: 20220525

REACTIONS (4)
  - Dizziness [Not Recovered/Not Resolved]
  - Fall [Unknown]
  - Head injury [Unknown]
  - Yellow skin [Not Recovered/Not Resolved]
